FAERS Safety Report 6136618-8 (Version None)
Quarter: 2009Q1

REPORT INFORMATION
  Report Type: 
  Country: None (occurrence: None)
  Receive Date: 20090330
  Receipt Date: 20090323
  Transmission Date: 20090719
  Serious: Yes (Life-Threatening, Hospitalization, Congenital Anomaly)
  Sender: FDA-Public Use
  Company Number: A0682197A

PATIENT
  Sex: Male
  Weight: 3.7 kg

DRUGS (9)
  1. PAXIL CR [Suspect]
     Indication: DEPRESSION
     Dosage: 12.5MG PER DAY
     Dates: start: 20050324, end: 20050330
  2. PAXIL [Suspect]
     Indication: MAJOR DEPRESSION
     Dosage: 20MG PER DAY
     Dates: start: 20050701, end: 20051101
  3. PAROXETINE HCL [Suspect]
     Indication: MAJOR DEPRESSION
     Dosage: 10MG PER DAY
     Dates: start: 20050130, end: 20060601
  4. FOLIC ACID [Concomitant]
     Dosage: 1MG PER DAY
     Dates: start: 20050101, end: 20051201
  5. AMITRIPTYLINE [Concomitant]
     Dosage: 5MG PER DAY
     Dates: start: 20050301, end: 20050401
  6. CEPHALEXIN [Concomitant]
     Dates: start: 20050601
  7. ROCEPHIN [Concomitant]
     Dates: start: 20050821
  8. ROCEPHIN [Concomitant]
     Dates: start: 20050624
  9. KEFLEX [Concomitant]
     Dates: start: 20050601

REACTIONS (32)
  - ATELECTASIS [None]
  - ATRIAL SEPTAL DEFECT [None]
  - CARDIAC MURMUR [None]
  - CARDIOMEGALY [None]
  - COARCTATION OF THE AORTA [None]
  - COLLAPSE OF LUNG [None]
  - CONGENITAL ANOMALY [None]
  - COUGH [None]
  - CYANOSIS [None]
  - DEHYDRATION [None]
  - DRUG EXPOSURE DURING PREGNANCY [None]
  - DYSPNOEA [None]
  - EATING DISORDER [None]
  - EMPHYSEMA [None]
  - HYPOXIA [None]
  - INTERCOSTAL RETRACTION [None]
  - JAUNDICE NEONATAL [None]
  - MITRAL VALVE PROLAPSE [None]
  - NASAL CONGESTION [None]
  - PARACHUTE MITRAL VALVE [None]
  - PATENT DUCTUS ARTERIOSUS [None]
  - PERSISTENT FOETAL CIRCULATION [None]
  - PNEUMONIA [None]
  - PULMONARY OEDEMA [None]
  - RESPIRATORY DISTRESS [None]
  - RESPIRATORY FAILURE [None]
  - RESPIRATORY RATE INCREASED [None]
  - RESPIRATORY SYNCYTIAL VIRUS BRONCHIOLITIS [None]
  - STAPHYLOCOCCAL INFECTION [None]
  - TACHYPNOEA [None]
  - VENTRICULAR HYPERTROPHY [None]
  - WHEEZING [None]
